FAERS Safety Report 5014122-8 (Version None)
Quarter: 2006Q2

REPORT INFORMATION
  Report Type: 
  Country: None (occurrence: None)
  Receive Date: 20060414
  Receipt Date: 20060205
  Transmission Date: 20061013
  Serious: No
  Sender: FDA-Public Use
  Company Number: 2006SP000636

PATIENT
  Age: 46 Year
  Sex: Male
  Weight: 47.6277 kg

DRUGS (7)
  1. LUNESTA [Suspect]
     Indication: INSOMNIA
     Dosage: SEE IMAGE
     Route: 048
     Dates: start: 20060201, end: 20060201
  2. LUNESTA [Suspect]
     Indication: INSOMNIA
     Dosage: SEE IMAGE
     Route: 048
     Dates: start: 20060201, end: 20060201
  3. LUNESTA [Suspect]
     Indication: INSOMNIA
     Dosage: SEE IMAGE
     Route: 048
     Dates: start: 20060201, end: 20060201
  4. LUNESTA [Suspect]
     Indication: INSOMNIA
     Dosage: SEE IMAGE
     Route: 048
     Dates: start: 20050201
  5. METHADONE HCL [Concomitant]
  6. MEGACE [Concomitant]
  7. MARINOL [Concomitant]

REACTIONS (5)
  - DYSGEUSIA [None]
  - EUPHORIC MOOD [None]
  - INFLUENZA LIKE ILLNESS [None]
  - INSOMNIA [None]
  - NIGHT SWEATS [None]
